FAERS Safety Report 26095398 (Version 3)
Quarter: 2025Q4

REPORT INFORMATION
  Report Type: Spontaneous
  Country: US (occurrence: US)
  Receive Date: 20251127
  Receipt Date: 20251231
  Transmission Date: 20260118
  Serious: No
  Sender: TOLMAR
  Company Number: US-Tolmar-TLM-2025-08804

PATIENT
  Age: 67 Year

DRUGS (3)
  1. ELIGARD [Suspect]
     Active Substance: LEUPROLIDE ACETATE
     Indication: Prostate cancer
     Dosage: LOT NUMBER: 15364CUS EXP: 11/2026?GTIN: 00362935227106?SN: 2861733014294?NDC: 62935-227-10?LOT NUMBE
     Dates: start: 20251118
  2. ELIGARD [Suspect]
     Active Substance: LEUPROLIDE ACETATE
     Dosage: REPLACEMENT DOSE GIVEN
     Route: 065
  3. DEVICE [Suspect]
     Active Substance: DEVICE
     Indication: Prostate cancer
     Dosage: LOT NUMBER: 15364CUS EXP: 11/2026?GTIN: 00362935227106?SN: 2861733014294?NDC: 62935-227-10?LOT NUMBE

REACTIONS (3)
  - Intercepted product preparation error [Unknown]
  - Wrong technique in product usage process [Unknown]
  - Device leakage [Unknown]

NARRATIVE: CASE EVENT DATE: 20251118
